FAERS Safety Report 23358881 (Version 1)
Quarter: 2024Q1

REPORT INFORMATION
  Report Type: Spontaneous
  Country: US (occurrence: US)
  Receive Date: 20240102
  Receipt Date: 20240102
  Transmission Date: 20240410
  Serious: No
  Sender: FDA-Public Use
  Company Number: US-BRISTOL-MYERS SQUIBB COMPANY-2024-000639

PATIENT
  Age: 53 Year
  Sex: Female

DRUGS (1)
  1. REVLIMID [Suspect]
     Active Substance: LENALIDOMIDE
     Indication: Bone disorder
     Dosage: DAILY FOR 21 DAYS
     Route: 048

REACTIONS (6)
  - Oedema peripheral [Unknown]
  - Headache [Unknown]
  - Hypertension [Unknown]
  - Anxiety [Unknown]
  - Chest pain [Unknown]
  - Off label use [Unknown]
